FAERS Safety Report 13819912 (Version 2)
Quarter: 2017Q4

REPORT INFORMATION
  Report Type: Spontaneous
  Country: US (occurrence: US)
  Receive Date: 20170731
  Receipt Date: 20171023
  Transmission Date: 20180320
  Serious: Yes (Other)
  Sender: FDA-Public Use
  Company Number: US-BEH-2017082284

PATIENT
  Age: 62 Year
  Sex: Female
  Weight: 53.61 kg

DRUGS (6)
  1. NPLATE [Suspect]
     Active Substance: ROMIPLOSTIM
     Dosage: UNK, QMT
     Route: 058
  2. NPLATE [Suspect]
     Active Substance: ROMIPLOSTIM
     Indication: IMMUNE THROMBOCYTOPENIC PURPURA
     Dosage: 5 IU/KG, QW
     Route: 058
     Dates: start: 20150112
  3. NPLATE [Suspect]
     Active Substance: ROMIPLOSTIM
     Dosage: TWICE MONTHLY
     Route: 058
  4. NPLATE [Suspect]
     Active Substance: ROMIPLOSTIM
     Dosage: UNK
     Route: 058
     Dates: start: 201707
  5. PRIVIGEN [Suspect]
     Active Substance: HUMAN IMMUNOGLOBULIN G
     Indication: IMMUNE THROMBOCYTOPENIC PURPURA
     Dosage: 50 G, QOW
     Route: 042
     Dates: start: 201707
  6. GAMMAGARD [Suspect]
     Active Substance: HUMAN IMMUNOGLOBULIN G
     Indication: IMMUNE THROMBOCYTOPENIC PURPURA
     Dosage: 50 G, QOW
     Route: 042
     Dates: start: 201707

REACTIONS (1)
  - Drug ineffective [Not Recovered/Not Resolved]

NARRATIVE: CASE EVENT DATE: 201707
